FAERS Safety Report 18553853 (Version 2)
Quarter: 2020Q4

REPORT INFORMATION
  Report Type: Spontaneous
  Country: SE (occurrence: SE)
  Receive Date: 20201127
  Receipt Date: 20201202
  Transmission Date: 20210114
  Serious: Yes (Other)
  Sender: FDA-Public Use
  Company Number: SE-PFIZER INC-2020467093

PATIENT
  Age: 75 Year
  Sex: Male

DRUGS (6)
  1. ZINC. [Concomitant]
     Active Substance: ZINC
     Dosage: UNK
  2. ATORVASTATIN CALCIUM. [Suspect]
     Active Substance: ATORVASTATIN CALCIUM
     Dosage: 40 MG, 1X/DAY
     Dates: start: 2015
  3. TROMBYL [Concomitant]
     Active Substance: ASPIRIN
     Dosage: 75 MG, 1X/DAY (ONE IN THE MORNING)
  4. TRIATEC [CODEINE PHOSPHATE;PARACETAMOL] [Concomitant]
     Active Substance: ACETAMINOPHEN\CODEINE PHOSPHATE
     Dosage: UNK, 2X/DAY (UNK UNK, BID)
     Dates: start: 2004
  5. ATORVASTATIN MYLAN [Suspect]
     Active Substance: ATORVASTATIN
     Indication: CAROTID ARTERY STENOSIS
     Dosage: 40 MG, 1X/DAY
     Dates: end: 20201107
  6. AMLODIPINE [Concomitant]
     Active Substance: AMLODIPINE BESYLATE
     Indication: HYPERTENSION
     Dosage: UNK UNK, 1X/DAY (1/2 TABLET QD)
     Dates: start: 2015

REACTIONS (7)
  - Amyotrophic lateral sclerosis [Unknown]
  - Dysarthria [Not Recovered/Not Resolved]
  - Mobility decreased [Recovered/Resolved]
  - Cerebrovascular accident [Unknown]
  - Dysphagia [Unknown]
  - Tongue movement disturbance [Unknown]
  - Product dose omission issue [Unknown]

NARRATIVE: CASE EVENT DATE: 20201103
